FAERS Safety Report 15044215 (Version 1)
Quarter: 2018Q2

REPORT INFORMATION
  Report Type: Spontaneous
  Country: IT (occurrence: IT)
  Receive Date: 20180621
  Receipt Date: 20180621
  Transmission Date: 20180711
  Serious: Yes (Other)
  Sender: FDA-Public Use
  Company Number: IT-ROCHE-2143340

PATIENT
  Age: 88 Year
  Sex: Female
  Weight: 68.6 kg

DRUGS (1)
  1. VALIUM [Suspect]
     Active Substance: DIAZEPAM
     Indication: GROIN PAIN
     Dosage: VALIUM 20ML 5MG/ML 5 DROPS. (7 DOSES) ORAL DROPS SOLUTION.
     Route: 048

REACTIONS (8)
  - Dyspnoea [Unknown]
  - Malaise [Unknown]
  - Pain in extremity [Unknown]
  - Agitation [Unknown]
  - Thrombosis in device [Unknown]
  - Hypotension [Recovered/Resolved]
  - Venous pressure increased [Recovered/Resolved]
  - Groin pain [Unknown]

NARRATIVE: CASE EVENT DATE: 20180516
